FAERS Safety Report 8231147-X (Version None)
Quarter: 2012Q1

REPORT INFORMATION
  Report Type: 
  Country: None (occurrence: None)
  Receive Date: 20120323
  Receipt Date: 20120319
  Transmission Date: 20120608
  Serious: Yes (Life-Threatening, Hospitalization, Other)
  Sender: FDA-Public Use
  Company Number: DE-PFIZER INC-2012070559

PATIENT
  Age: 50 Year
  Sex: Female

DRUGS (11)
  1. VENLAFAXINE HYDROCHLORIDE [Suspect]
     Dosage: 225 MG, UNK
     Route: 048
     Dates: start: 20110707, end: 20111013
  2. TEVETEN [Concomitant]
     Dosage: 600 MG, UNK
     Route: 048
  3. LITHIUM CARBONATE [Suspect]
     Dosage: 225 MG - 625 MG
     Route: 048
     Dates: start: 20110809, end: 20110830
  4. GELOMYRTOL [Concomitant]
     Indication: UPPER RESPIRATORY TRACT INFECTION
     Dosage: 240 MG - 360 MG
     Route: 048
     Dates: start: 20111004, end: 20111012
  5. HYDROCHLOROTHIAZIDE [Concomitant]
     Dosage: 25 MG, UNK
     Route: 048
  6. XIMOVAN [Concomitant]
     Dosage: 7.5 MG, UNK
     Route: 048
  7. ACTRAPID [Concomitant]
     Dosage: UNK
  8. LITHIUM CARBONATE [Suspect]
     Dosage: 295 MG - 442 MG
     Dates: start: 20110831, end: 20110907
  9. TORSEMIDE [Concomitant]
     Dosage: 5 MG, UNK
     Route: 048
  10. VENLAFAXINE HYDROCHLORIDE [Suspect]
     Dosage: 75 MG - 100 MG
     Route: 048
     Dates: start: 20110627, end: 20110706
  11. PANTOPRAZOLE [Concomitant]
     Dosage: 20 MG, UNK
     Route: 048

REACTIONS (5)
  - THROMBOCYTOPENIA [None]
  - IDIOPATHIC THROMBOCYTOPENIC PURPURA [None]
  - UPPER RESPIRATORY TRACT INFECTION [None]
  - PURPURA [None]
  - DRUG LEVEL INCREASED [None]
